FAERS Safety Report 4334188-8 (Version None)
Quarter: 2004Q2

REPORT INFORMATION
  Report Type: 
  Country: None (occurrence: None)
  Receive Date: 20040405
  Receipt Date: 20040325
  Transmission Date: 20050107
  Serious: Yes (Hospitalization)
  Sender: FDA-Public Use
  Company Number: 204554

PATIENT
  Age: 62 Year
  Sex: Female

DRUGS (11)
  1. HERCEPTIN [Suspect]
     Indication: BREAST CANCER
     Dosage: 271.6 MG, SINGLE , INTRAVENOUS
     Route: 042
     Dates: start: 20040122, end: 20040122
  2. TAXOTERE [Suspect]
     Indication: BREAST CANCER
     Dosage: 171 MG, Q3W, INTRAVENOUS
     Route: 042
     Dates: start: 20030123
  3. DOXORUBICIN HCL [Suspect]
     Indication: BREAST CANCER
     Dosage: 104 MG, Q3W, INTRAVENOUS
     Route: 042
     Dates: start: 20031023, end: 20031229
  4. CYTOXAN [Suspect]
     Indication: BREAST CANCER
     Dosage: 1040 MG, Q3W, INTRAVENOUS
     Route: 042
     Dates: start: 20031023, end: 20031229
  5. DECADRON [Concomitant]
  6. ZOFRAN [Concomitant]
  7. LORAZEPAM [Concomitant]
  8. NORVASC [Concomitant]
  9. SYNTHROID [Concomitant]
  10. KLOR-CON [Concomitant]
  11. HYDROCHLOROTHIAZIDE [Concomitant]

REACTIONS (2)
  - DIVERTICULITIS [None]
  - NEUTROPENIC INFECTION [None]
